FAERS Safety Report 8479775-0 (Version None)
Quarter: 2012Q2

REPORT INFORMATION
  Report Type: 
  Country: None (occurrence: None)
  Receive Date: 20120629
  Receipt Date: 20120621
  Transmission Date: 20120825
  Serious: Yes (Other)
  Sender: FDA-Public Use
  Company Number: US-ABBOTT-12P-163-0948632-00

PATIENT
  Age: 62 Year
  Sex: Female

DRUGS (10)
  1. NORVASC [Concomitant]
     Indication: PRODUCT USED FOR UNKNOWN INDICATION
  2. DIOVAN HCT [Concomitant]
     Indication: PRODUCT USED FOR UNKNOWN INDICATION
  3. VIVELLE [Concomitant]
     Indication: HORMONE REPLACEMENT THERAPY
     Dosage: PATCH
  4. HUMIRA [Suspect]
     Indication: PSORIASIS
     Dates: start: 20101101
  5. LIPITOR [Concomitant]
     Indication: BLOOD CHOLESTEROL
  6. PROGESTERONE [Concomitant]
     Indication: HORMONE REPLACEMENT THERAPY
  7. SYNTHROID [Concomitant]
     Indication: PRODUCT USED FOR UNKNOWN INDICATION
  8. SAVELLA [Concomitant]
     Indication: PAIN
  9. POTASSIUM CHLORIDE [Concomitant]
     Indication: BLOOD PRESSURE
  10. TRAZODONE HCL [Concomitant]
     Indication: PAIN

REACTIONS (1)
  - CYST [None]
